FAERS Safety Report 4876383-5 (Version None)
Quarter: 2005Q4

REPORT INFORMATION
  Report Type: 
  Country: None (occurrence: None)
  Receive Date: 20051206
  Receipt Date: 20051027
  Transmission Date: 20060501
  Serious: No
  Sender: FDA-Public Use
  Company Number: USA0510110862

PATIENT
  Age: 36 Year
  Sex: Male
  Weight: 91 kg

DRUGS (4)
  1. CYMBALTA [Suspect]
     Indication: PAIN
     Dosage: 120  MG DAY
     Dates: start: 20050101, end: 20051001
  2. VICODIN [Concomitant]
  3. OXYCONTIN [Concomitant]
  4. NEURONTIN [Concomitant]

REACTIONS (7)
  - AGITATION [None]
  - CHEST PAIN [None]
  - DISCOMFORT [None]
  - DRUG WITHDRAWAL SYNDROME [None]
  - FEELING COLD [None]
  - HEADACHE [None]
  - HOT FLUSH [None]
